FAERS Safety Report 13878952 (Version 2)
Quarter: 2017Q3

REPORT INFORMATION
  Report Type: Report from Study
  Country: FR (occurrence: FR)
  Receive Date: 20170817
  Receipt Date: 20170901
  Transmission Date: 20171127
  Serious: Yes (Other)
  Sender: FDA-Public Use
  Company Number: FR-SA-2017SA109072

PATIENT
  Age: 38 Year
  Sex: Female

DRUGS (2)
  1. DUPILUMAB [Suspect]
     Active Substance: DUPILUMAB
     Indication: DERMATITIS ATOPIC
     Route: 058
     Dates: start: 20170511, end: 20170511
  2. DUPILUMAB [Suspect]
     Active Substance: DUPILUMAB
     Indication: DERMATITIS ATOPIC
     Dosage: FREQUENCY: EVERY TWO WEEKS
     Route: 058
     Dates: start: 20170525

REACTIONS (12)
  - Keratitis [Recovered/Resolved]
  - Diarrhoea [Recovered/Resolved]
  - Blood pressure decreased [Recovered/Resolved]
  - Vulvovaginal mycotic infection [Recovering/Resolving]
  - Dehydration [Recovered/Resolved]
  - Blepharitis [Recovered/Resolved]
  - Asthenia [Recovered/Resolved]
  - Scleral hyperaemia [Not Recovered/Not Resolved]
  - Dry eye [Recovered/Resolved]
  - Fall [Recovered/Resolved]
  - Xerophthalmia [Not Recovered/Not Resolved]
  - Eye pruritus [Not Recovered/Not Resolved]

NARRATIVE: CASE EVENT DATE: 20170512
